FAERS Safety Report 13503996 (Version 3)
Quarter: 2017Q2

REPORT INFORMATION
  Report Type: Report from Study
  Country: US (occurrence: US)
  Receive Date: 20170502
  Receipt Date: 20170508
  Transmission Date: 20170830
  Serious: Yes (Hospitalization)
  Sender: FDA-Public Use
  Company Number: US-JNJFOC-20170428509

PATIENT
  Age: 12 Year
  Sex: Female
  Weight: 44.8 kg

DRUGS (1)
  1. REMICADE [Suspect]
     Active Substance: INFLIXIMAB
     Indication: INFLAMMATORY BOWEL DISEASE
     Route: 042
     Dates: start: 20150825

REACTIONS (1)
  - Vaginal fistula [Recovered/Resolved]

NARRATIVE: CASE EVENT DATE: 20170420
